FAERS Safety Report 7372226-9 (Version None)
Quarter: 2011Q1

REPORT INFORMATION
  Report Type: 
  Country: None (occurrence: None)
  Receive Date: 20110324
  Receipt Date: 20110316
  Transmission Date: 20110831
  Serious: Yes (Other)
  Sender: FDA-Public Use
  Company Number: US-TYCO HEALTHCARE/MALLINCKRODT-T201100615

PATIENT
  Sex: Female

DRUGS (1)
  1. OPTIRAY 350 [Suspect]
     Indication: COMPUTERISED TOMOGRAM
     Dosage: 40 CC CONTRAST FOLLOWED BY 8 SEC DELAY FOLLOWED BY 30 CC
     Route: 042
     Dates: start: 20110316, end: 20110316

REACTIONS (2)
  - AIR EMBOLISM [None]
  - DRUG ADMINISTRATION ERROR [None]
